FAERS Safety Report 5320992-6 (Version None)
Quarter: 2007Q2

REPORT INFORMATION
  Report Type: 
  Country: None (occurrence: None)
  Receive Date: 20070510
  Receipt Date: 20070428
  Transmission Date: 20071010
  Serious: Yes (Hospitalization, Other)
  Sender: FDA-Public Use
  Company Number: PHBS2007BE07521

PATIENT
  Age: 21 Year
  Sex: Male
  Weight: 75 kg

DRUGS (2)
  1. RITALIN [Suspect]
     Indication: ATTENTION DEFICIT/HYPERACTIVITY DISORDER
     Dosage: 10 MG, QID
     Route: 048
     Dates: start: 20060901, end: 20070101
  2. RITALIN [Suspect]
     Dosage: }80MG
     Route: 048
     Dates: start: 20070101

REACTIONS (5)
  - APATHY [None]
  - BIPOLAR I DISORDER [None]
  - MANIA [None]
  - SCHIZOPHRENIFORM DISORDER [None]
  - WEIGHT INCREASED [None]
